FAERS Safety Report 5202378-8 (Version None)
Quarter: 2006Q4

REPORT INFORMATION
  Report Type: 
  Country: None (occurrence: None)
  Receive Date: 20061012
  Receipt Date: 20060613
  Transmission Date: 20070319
  Serious: No
  Sender: FDA-Public Use
  Company Number: 2006S1000114

PATIENT
  Age: 44 Year
  Sex: Male
  Weight: 63.5 kg

DRUGS (3)
  1. CUBICIN [Suspect]
     Indication: OSTEOMYELITIS
     Dosage: 6.3 MG/KG; Q24H;
     Dates: start: 20060501, end: 20060601
  2. CUBICIN [Suspect]
     Indication: STAPHYLOCOCCAL INFECTION
     Dosage: 6.3 MG/KG; Q24H;
     Dates: start: 20060501, end: 20060601
  3. CEFAZOLIN [Concomitant]

REACTIONS (1)
  - DEVICE RELATED INFECTION [None]
